FAERS Safety Report 17468091 (Version 1)
Quarter: 2020Q1

REPORT INFORMATION
  Report Type: Spontaneous
  Country: US (occurrence: US)
  Receive Date: 20191107
  Receipt Date: 20191107
  Transmission Date: 20200409
  Serious: No
  Sender: FDA-Public Use
  Company Number: None

PATIENT
  Age: 28 Year
  Sex: Female

DRUGS (4)
  1. ADDERALL [Concomitant]
     Active Substance: AMPHETAMINE ASPARTATE\AMPHETAMINE SULFATE\DEXTROAMPHETAMINE SACCHARATE\DEXTROAMPHETAMINE SULFATE
  2. VYVANSE [Concomitant]
     Active Substance: LISDEXAMFETAMINE DIMESYLATE
  3. XANAX [Concomitant]
     Active Substance: ALPRAZOLAM
  4. DANK VAPES THC CARTRIDGES [Suspect]
     Active Substance: .DELTA.8-TETRAHYDROCANNABINOL\DEVICE\HERBALS

REACTIONS (12)
  - Cough [None]
  - Heart rate increased [None]
  - Migraine [None]
  - Nausea [None]
  - Vomiting [None]
  - Electronic cigarette user [None]
  - Toxicity to various agents [None]
  - Drug abuse [None]
  - Substance abuse [None]
  - Pyrexia [None]
  - Back pain [None]
  - Intentional device use issue [None]
